FAERS Safety Report 5594810-5 (Version None)
Quarter: 2008Q1

REPORT INFORMATION
  Report Type: 
  Country: None (occurrence: None)
  Receive Date: 20080117
  Receipt Date: 20080107
  Transmission Date: 20080703
  Serious: Yes (Other)
  Sender: FDA-Public Use
  Company Number: B0502710A

PATIENT
  Age: 45 Year
  Sex: Female
  Weight: 65 kg

DRUGS (8)
  1. ONDANSETRON [Suspect]
     Indication: PROPHYLAXIS OF NAUSEA AND VOMITING
     Dosage: 8MG SINGLE DOSE
     Route: 042
  2. ALPRAZOLAM [Concomitant]
     Dosage: .25MG AT NIGHT
     Route: 065
  3. PROPOFOL [Concomitant]
     Dosage: 140MG SINGLE DOSE
     Route: 042
  4. VECURONIUM BROMIDE [Concomitant]
     Dosage: 7.5MG SINGLE DOSE
     Route: 042
  5. NITROUS OXIDE + OXYGEN + ISOFLURANE [Concomitant]
     Route: 055
  6. PETHIDINE [Concomitant]
     Indication: ANALGESIA
     Dosage: 50MG SINGLE DOSE
     Route: 042
  7. GLYCOPYRROLATE [Concomitant]
     Dosage: .4MG SINGLE DOSE
     Route: 042
  8. NEOSTIGMINE [Concomitant]
     Dosage: 2.5MG SINGLE DOSE
     Route: 042

REACTIONS (4)
  - CHEST DISCOMFORT [None]
  - ECG SIGNS OF MYOCARDIAL ISCHAEMIA [None]
  - MYOCARDIAL ISCHAEMIA [None]
  - PAIN IN EXTREMITY [None]
